FAERS Safety Report 7212082-2 (Version None)
Quarter: 2010Q4

REPORT INFORMATION
  Report Type: 
  Country: None (occurrence: None)
  Receive Date: 20101228
  Receipt Date: 20101221
  Transmission Date: 20110411
  Serious: Yes (Hospitalization)
  Sender: FDA-Public Use
  Company Number: 2010S1000410

PATIENT
  Age: 86 Year
  Sex: Female

DRUGS (3)
  1. DARVOCET-N 100 [Suspect]
     Indication: ARTHRITIS
     Dosage: PO
     Route: 048
     Dates: end: 20101201
  2. DARVOCET-N 100 [Suspect]
     Indication: LYMPHOMA
     Dosage: PO
     Route: 048
     Dates: end: 20101201
  3. DARVOCET-N 100 [Suspect]
     Indication: MIGRAINE
     Dosage: PO
     Route: 048
     Dates: end: 20101201

REACTIONS (2)
  - CARDIAC PACEMAKER INSERTION [None]
  - UNEVALUABLE EVENT [None]
